FAERS Safety Report 6504842-8 (Version None)
Quarter: 2009Q4

REPORT INFORMATION
  Report Type: 
  Country: None (occurrence: None)
  Receive Date: 20091218
  Receipt Date: 20091207
  Transmission Date: 20100525
  Serious: No
  Sender: FDA-Public Use
  Company Number: BR-BAYER-200913502LA

PATIENT
  Age: 44 Year
  Sex: Female

DRUGS (4)
  1. BETAFERON [Suspect]
     Indication: MULTIPLE SCLEROSIS
     Dosage: TOTAL DAILY DOSE: 8 MIU
     Route: 058
  2. BETAFERON [Suspect]
     Dosage: BETAJECT
     Route: 058
     Dates: start: 20090201
  3. MANTIDAN [Concomitant]
     Indication: PARKINSON'S DISEASE
     Dosage: TOTAL DAILY DOSE: 1 DF
     Route: 065
  4. VIRILON MULTIVITAMIN [Concomitant]
     Indication: ANAEMIA
     Dosage: TOTAL DAILY DOSE: 1 DF
     Route: 048

REACTIONS (8)
  - ALANINE AMINOTRANSFERASE INCREASED [None]
  - DEPRESSED MOOD [None]
  - DEPRESSION [None]
  - DISTURBANCE IN ATTENTION [None]
  - HEPATIC ENZYME ABNORMAL [None]
  - INJECTION SITE PAIN [None]
  - INSOMNIA [None]
  - TEARFULNESS [None]
